FAERS Safety Report 5161851-1 (Version None)
Quarter: 2006Q4

REPORT INFORMATION
  Report Type: 
  Country: None (occurrence: None)
  Receive Date: 20061130
  Receipt Date: 20061005
  Transmission Date: 20070319
  Serious: No
  Sender: FDA-Public Use
  Company Number: US-GLAXOSMITHKLINE-A0622639A

PATIENT
  Age: 50 Year
  Sex: Male

DRUGS (5)
  1. WELLBUTRIN XL [Suspect]
     Indication: ANXIETY
     Dosage: 150MG PER DAY
     Route: 048
     Dates: end: 20060930
  2. LOTENSIN [Concomitant]
  3. NEXIUM [Concomitant]
  4. METFORMIN [Concomitant]
  5. VYTORIN [Concomitant]

REACTIONS (7)
  - DISORIENTATION [None]
  - DISTRACTIBILITY [None]
  - EUPHORIC MOOD [None]
  - EYE PAIN [None]
  - HEAD DISCOMFORT [None]
  - PARAESTHESIA [None]
  - TINNITUS [None]
